FAERS Safety Report 8072958-3 (Version None)
Quarter: 2012Q1

REPORT INFORMATION
  Report Type: 
  Country: None (occurrence: None)
  Receive Date: 20120126
  Receipt Date: 20120119
  Transmission Date: 20120608
  Serious: Yes (Other)
  Sender: FDA-Public Use
  Company Number: AU-BAXTER-2012BH002360

PATIENT
  Age: 68 Year
  Sex: Male

DRUGS (3)
  1. HEPARIN SODIUM 1,000 UNITS AND SODIUM CHLORIDE 0.9% [Suspect]
     Indication: CARDIOPULMONARY BYPASS
     Route: 040
  2. CARDIOPLEGIA BASE SOLUTION IN PLASTIC CONTAINER [Suspect]
     Indication: CARDIOPULMONARY BYPASS
     Route: 042
  3. HEPARIN SODIUM 1,000 UNITS AND SODIUM CHLORIDE 0.9% [Suspect]
     Route: 040

REACTIONS (1)
  - HYPERKALAEMIA [None]
